FAERS Safety Report 23824370 (Version 1)
Quarter: 2024Q2

REPORT INFORMATION
  Report Type: Spontaneous
  Country: DE (occurrence: DE)
  Receive Date: 20240507
  Receipt Date: 20240507
  Transmission Date: 20240716
  Serious: Yes (Congenital Anomaly, Other)
  Sender: FDA-Public Use
  Company Number: None

PATIENT
  Age: 1 Day
  Sex: Male
  Weight: 1 kg

DRUGS (5)
  1. PREGABALIN [Suspect]
     Active Substance: PREGABALIN
     Indication: Product used for unknown indication
     Dosage: MOTHER DOSE: 600 [MG/D], 13-DEC-2021 TO 11-JUL-2022 FOR 210 DAYS.
     Route: 064
  2. QUETIAPINE [Suspect]
     Active Substance: QUETIAPINE
     Indication: Product used for unknown indication
     Dosage: MOTHER DOSE: 200 MG/D IN THE LATE PREGNANCY COURSE 100 MG/D, 13-DEC-2021-11-JUL-2022 FOR 210 DAYS.
     Route: 064
  3. VENLAFAXINE [Suspect]
     Active Substance: VENLAFAXINE HYDROCHLORIDE
     Indication: Product used for unknown indication
     Dosage: MOTHER DOSE: 150 [MG/D], 13-DEC-2021 TO 11-JUL-2022 FOR 210 DAYS.
     Route: 064
  4. METHADONE [Suspect]
     Active Substance: METHADONE HYDROCHLORIDE
     Indication: Product used for unknown indication
     Dosage: MOTHER DOSE: 60 [MG/D], 13-DEC-2021 TO 11-JUL-2022 FOR 210 DAYS.
     Route: 064
  5. ONDANSETRON [Concomitant]
     Active Substance: ONDANSETRON
     Indication: Product used for unknown indication
     Dosage: SEVERAL TIMES DURING PREGNANCY
     Route: 065

REACTIONS (5)
  - Congenital hydrocephalus [Unknown]
  - Drug withdrawal syndrome neonatal [Recovered/Resolved]
  - Congenital nystagmus [Unknown]
  - Developmental delay [Unknown]
  - Foetal exposure during pregnancy [Unknown]

NARRATIVE: CASE EVENT DATE: 20220701
